FAERS Safety Report 6622044-1 (Version None)
Quarter: 2010Q1

REPORT INFORMATION
  Report Type: 
  Country: None (occurrence: None)
  Receive Date: 20100223
  Receipt Date: 20091117
  Transmission Date: 20100710
  Serious: No
  Sender: FDA-Public Use
  Company Number: 8054989

PATIENT
  Sex: Female
  Weight: 61.3 kg

DRUGS (13)
  1. CERTOLIZUMAB PEGOL (UCB, INC) [Suspect]
     Indication: CROHN'S DISEASE
     Dosage: SUBCUTANEOUS
     Route: 058
     Dates: start: 20090523
  2. ACIDOPHILUS [Concomitant]
  3. VITAMIN B-12 [Concomitant]
  4. CHOLESTYRAMINE [Concomitant]
  5. LACTAID [Concomitant]
  6. SERTRALINE HCL [Concomitant]
  7. VITAMIN C [Concomitant]
  8. MULTI-VITAMINS [Concomitant]
  9. POTASSIUM [Concomitant]
  10. CARAFATE [Concomitant]
  11. LOMOTIL [Concomitant]
  12. TIGAN [Concomitant]
  13. PROTONIX [Concomitant]

REACTIONS (2)
  - DRUG INEFFECTIVE [None]
  - RASH PRURITIC [None]
